FAERS Safety Report 8392083-1 (Version None)
Quarter: 2012Q2

REPORT INFORMATION
  Report Type: 
  Country: None (occurrence: None)
  Receive Date: 20120529
  Receipt Date: 20120521
  Transmission Date: 20120825
  Serious: Yes (Hospitalization, Other)
  Sender: FDA-Public Use
  Company Number: GB-ROCHE-1071073

PATIENT
  Age: 60 Year
  Sex: Female

DRUGS (7)
  1. CLOPIDOGREL [Concomitant]
     Indication: CARDIAC DISORDER
     Route: 048
  2. RAMIPRIL [Concomitant]
     Indication: CARDIAC DISORDER
     Route: 048
  3. SIMVASTATIN [Concomitant]
     Indication: CARDIAC DISORDER
     Route: 048
  4. MABTHERA [Suspect]
     Indication: RHEUMATOID ARTHRITIS
     Route: 042
     Dates: start: 20080501
  5. SULFASALAZINE [Concomitant]
     Indication: RHEUMATOID ARTHRITIS
     Route: 048
  6. ACETYLSALICYLIC ACID SRT [Concomitant]
     Indication: CARDIAC DISORDER
     Dosage: REPORTED AS ASPRIN
     Route: 048
  7. LANSOPRAZOLE [Concomitant]
     Route: 048

REACTIONS (2)
  - ELECTROCARDIOGRAM ABNORMAL [None]
  - ACUTE CORONARY SYNDROME [None]
